FAERS Safety Report 6893320-2 (Version None)
Quarter: 2010Q3

REPORT INFORMATION
  Report Type: 
  Country: None (occurrence: None)
  Receive Date: 20100731
  Receipt Date: 20090811
  Transmission Date: 20110219
  Serious: No
  Sender: FDA-Public Use
  Company Number: US-PFIZER INC-2009228450

PATIENT
  Sex: Female
  Weight: 65.77 kg

DRUGS (4)
  1. NEURONTIN [Suspect]
     Indication: PANIC ATTACK
     Dosage: 600 MG, 3X/DAY
     Dates: start: 20090401
  2. NEURONTIN [Suspect]
     Indication: NEURALGIA
  3. CITALOPRAM [Concomitant]
     Dosage: UNK
  4. TOPAMAX [Concomitant]
     Dosage: UNK

REACTIONS (1)
  - PANIC ATTACK [None]
